FAERS Safety Report 16160219 (Version 2)
Quarter: 2019Q4

REPORT INFORMATION
  Report Type: Spontaneous
  Country: DE (occurrence: DE)
  Receive Date: 20190404
  Receipt Date: 20191016
  Transmission Date: 20200122
  Serious: Yes (Death, Life-Threatening, Hospitalization, Other)
  Sender: FDA-Public Use
  Company Number: DE-TEVA-2018-DE-981782

PATIENT
  Age: 68 Year
  Sex: Female

DRUGS (18)
  1. SPIRIVA [Concomitant]
     Active Substance: TIOTROPIUM BROMIDE MONOHYDRATE
     Dosage: 1-0-0
     Route: 048
  2. OXAZEPAM. [Concomitant]
     Active Substance: OXAZEPAM
     Dosage: 0-0-0-5
     Route: 048
  3. PARACETAMOL [Suspect]
     Active Substance: ACETAMINOPHEN
     Indication: PAIN IN EXTREMITY
     Dosage: 4 TIMES 1G
     Route: 065
     Dates: start: 20180430, end: 20180502
  4. METHOTREXAT [Suspect]
     Active Substance: METHOTREXATE
     Indication: LEUKAEMIA
     Dosage: DAILY DOSE: 5 MG MILLGRAM(S) EVERY WEEKS
     Route: 058
     Dates: start: 20180314, end: 20180518
  5. TOREM [Concomitant]
     Active Substance: TORSEMIDE
     Dosage: 5-0-0
     Route: 048
  6. SYMBICORT [Concomitant]
     Active Substance: BUDESONIDE\FORMOTEROL FUMARATE DIHYDRATE
     Dosage: 1-0-1
  7. NEBILET [Concomitant]
     Active Substance: NEBIVOLOL
     Route: 048
  8. PARACETAMOL [Suspect]
     Active Substance: ACETAMINOPHEN
     Dosage: 1500 MILLIGRAM DAILY; DAILY DOSE: 1500 MG MILLGRAM(S) EVERY DAYS
     Route: 048
     Dates: start: 20180314, end: 20180514
  9. VITAMIN B COMPLEX [Concomitant]
     Active Substance: CYANOCOBALAMIN\DEXPANTHENOL\NIACINAMIDE\PYRIDOXINE HYDROCHLORIDE\RIBOFLAVIN 5^-PHOSPHATE SODIUM\THIAMINE HYDROCHLORIDE\VITAMIN B COMPLEX
     Dosage: DAILY DOSE: 1 DF DOSAGE FORM EVERY DAYS
     Route: 065
  10. NOVALGIN [Concomitant]
     Dosage: 90 GTT DAILY; DAILY DOSE: 90 GTT DROP(S) EVERY DAYS, 30-30-30
     Route: 048
  11. ELIQUIS [Concomitant]
     Active Substance: APIXABAN
     Dosage: 2,5-0-2,5
     Route: 048
  12. LYRICA [Concomitant]
     Active Substance: PREGABALIN
     Dosage: 25 MILLIGRAM DAILY; DAILY DOSE: 25 MG MILLGRAM(S) EVERY DAYS
     Route: 065
  13. TRAMAL [Concomitant]
     Active Substance: TRAMADOL
  14. PANTOPRAZOL [Concomitant]
     Active Substance: PANTOPRAZOLE SODIUM
     Dosage: 20MG-0MG-20MG
     Route: 048
  15. BUDENOFALK [Concomitant]
     Active Substance: BUDESONIDE
  16. IDEOS [Concomitant]
     Active Substance: CALCIUM CARBONATE\CHOLECALCIFEROL
  17. PARACETAMOL B. BRAUN MELSUNG [Suspect]
     Active Substance: ACETAMINOPHEN
     Dosage: 1 GRAM DAILY; DAILY DOSE: 1 G GRAM(S) EVERY DAYS
     Route: 042
     Dates: start: 20180430, end: 20180501
  18. PREDNISOLONE. [Concomitant]
     Active Substance: PREDNISOLONE
     Dosage: 5-0-0
     Route: 048

REACTIONS (11)
  - Hepatic failure [Fatal]
  - Skin haemorrhage [Recovered/Resolved]
  - Syncope [Recovered/Resolved]
  - Dyspnoea [Unknown]
  - Liver disorder [Fatal]
  - Ulcer [Unknown]
  - Hepatic failure [Fatal]
  - Hypoglycaemia [Unknown]
  - Hepatic enzyme increased [Fatal]
  - Tachycardia [Unknown]
  - Hyperhidrosis [Unknown]

NARRATIVE: CASE EVENT DATE: 2018
